FAERS Safety Report 4504630-8 (Version None)
Quarter: 2004Q4

REPORT INFORMATION
  Report Type: 
  Country: None (occurrence: None)
  Receive Date: 20041116
  Receipt Date: 20041101
  Transmission Date: 20050328
  Serious: Yes (Other)
  Sender: FDA-Public Use
  Company Number: 2004-UK-01121UK

PATIENT
  Age: 68 Year
  Sex: Male

DRUGS (6)
  1. SPIRIVA [Suspect]
     Indication: CHRONIC OBSTRUCTIVE AIRWAYS DISEASE EXACERBATED
     Dosage: (1NR)
  2. BUDESONIDE (BUDESONIDE) [Concomitant]
  3. EFORMOTEROL (FORMOTEROL) [Concomitant]
  4. IPRATROPIUM BROMIDE [Concomitant]
  5. TERBUTALINE SULFATE [Concomitant]
  6. SYMBICORT [Concomitant]

REACTIONS (4)
  - DYSPNOEA [None]
  - MUSCLE CRAMP [None]
  - TETANY [None]
  - VOMITING [None]
